FAERS Safety Report 8164103-0 (Version None)
Quarter: 2012Q1

REPORT INFORMATION
  Report Type: 
  Country: None (occurrence: None)
  Receive Date: 20120224
  Receipt Date: 20120223
  Transmission Date: 20120608
  Serious: Yes (Other)
  Sender: FDA-Public Use
  Company Number: US-BAYER-2012-018055

PATIENT
  Age: 33 Year
  Sex: Female

DRUGS (4)
  1. YAZ [Suspect]
     Dosage: UNK
     Dates: start: 20100223
  2. YAZ [Suspect]
     Dosage: UNK
     Route: 048
     Dates: start: 20090226, end: 20090815
  3. DROSPIRENONE AND ETHINYL ESTRADIOL [Suspect]
     Dosage: UNK
     Dates: start: 20090815, end: 20100223
  4. YASMIN [Suspect]
     Dosage: UNK
     Route: 048
     Dates: start: 20050328, end: 20070331

REACTIONS (1)
  - CHOLECYSTECTOMY [None]
